FAERS Safety Report 7708694-X (Version None)
Quarter: 2011Q3

REPORT INFORMATION
  Report Type: 
  Country: None (occurrence: None)
  Receive Date: 20110825
  Receipt Date: 20110811
  Transmission Date: 20111222
  Serious: Yes (Hospitalization)
  Sender: FDA-Public Use
  Company Number: GB-UCBSA-039101

PATIENT
  Sex: Male

DRUGS (1)
  1. CIMZIA [Suspect]
     Route: 058
     Dates: start: 20110101

REACTIONS (1)
  - DEEP VEIN THROMBOSIS [None]
